FAERS Safety Report 9689108 (Version 1)
Quarter: 2013Q4

REPORT INFORMATION
  Report Type: Spontaneous
  Country: US (occurrence: None)
  Receive Date: 20131113
  Receipt Date: 20131113
  Transmission Date: 20140711
  Serious: Yes (Death, Congenital Anomaly, Other)
  Sender: FDA-Public Use
  Company Number: AUR-APL-2013-09416

PATIENT
  Sex: Female
  Weight: 1.8 kg

DRUGS (4)
  1. ACICLOVIR [Suspect]
     Indication: EVIDENCE BASED TREATMENT
     Route: 064
  2. FOSCARNET [Suspect]
     Indication: EVIDENCE BASED TREATMENT
     Route: 064
  3. AZITHROMYCIN (AZITHROMYCIN) [Concomitant]
  4. PIPERACILLIN +TAZOBACTAM (PIP/TAZO) [Concomitant]

REACTIONS (3)
  - Maternal drugs affecting foetus [None]
  - Ascites [None]
  - Foetal death [None]
